FAERS Safety Report 9679565 (Version 1)
Quarter: 2013Q4

REPORT INFORMATION
  Report Type: Spontaneous
  Country: US (occurrence: US)
  Receive Date: 20131109
  Receipt Date: 20131109
  Transmission Date: 20140711
  Serious: No
  Sender: FDA-Public Use
  Company Number: US-SANOFI-AVENTIS-2013SA093793

PATIENT
  Age: 67 Year
  Sex: Female
  Weight: 73 kg

DRUGS (4)
  1. ALLEGRA-D, 24 HR [Suspect]
     Indication: HYPERSENSITIVITY
     Dosage: 180/240 MG
     Route: 048
     Dates: start: 20130910, end: 20130910
  2. ALLEGRA-D, 24 HR [Suspect]
     Indication: HYPERSENSITIVITY
     Dosage: 180/240 MG
     Route: 048
     Dates: start: 20130924, end: 20130924
  3. PREMARIN [Concomitant]
     Route: 065
     Dates: start: 1989
  4. CLARITIN [Concomitant]
     Indication: HYPERSENSITIVITY
     Route: 065

REACTIONS (7)
  - Insomnia [Not Recovered/Not Resolved]
  - Hyperhidrosis [Not Recovered/Not Resolved]
  - Palpitations [Not Recovered/Not Resolved]
  - Nausea [Not Recovered/Not Resolved]
  - Fatigue [Not Recovered/Not Resolved]
  - Depressed mood [Recovered/Resolved]
  - Irritability [Recovered/Resolved]
